FAERS Safety Report 7343310-0 (Version None)
Quarter: 2011Q1

REPORT INFORMATION
  Report Type: 
  Country: None (occurrence: None)
  Receive Date: 20110310
  Receipt Date: 20110307
  Transmission Date: 20110831
  Serious: Yes (Other)
  Sender: FDA-Public Use
  Company Number: US-PFIZER INC-2011049418

PATIENT
  Age: 83 Year
  Sex: Female

DRUGS (1)
  1. BACITRACIN [Suspect]
     Dosage: 50000/10 ML

REACTIONS (4)
  - ANXIETY [None]
  - ANAPHYLACTIC REACTION [None]
  - HYPOTENSION [None]
  - AGITATION [None]
